FAERS Safety Report 12418634 (Version 2)
Quarter: 2016Q2

REPORT INFORMATION
  Report Type: Spontaneous
  Country: JP (occurrence: JP)
  Receive Date: 20160531
  Receipt Date: 20160627
  Transmission Date: 20160815
  Serious: Yes (Other)
  Sender: FDA-Public Use
  Company Number: JP-ROCHE-1766064

PATIENT
  Age: 88 Year
  Sex: Female

DRUGS (3)
  1. LUCENTIS [Suspect]
     Active Substance: RANIBIZUMAB
     Dosage: THIRD INJECTION
     Route: 050
     Dates: start: 20150518
  2. LUCENTIS [Suspect]
     Active Substance: RANIBIZUMAB
     Dosage: SECOND INJECTION
     Route: 050
     Dates: start: 20150313, end: 20150313
  3. LUCENTIS [Suspect]
     Active Substance: RANIBIZUMAB
     Indication: RETINAL VEIN OCCLUSION
     Dosage: FIRST INJECTON
     Route: 050
     Dates: start: 20150206, end: 20150206

REACTIONS (3)
  - Visual acuity reduced [Not Recovered/Not Resolved]
  - Optic atrophy [Not Recovered/Not Resolved]
  - Macular degeneration [Not Recovered/Not Resolved]
